FAERS Safety Report 4431988-0 (Version None)
Quarter: 2004Q3

REPORT INFORMATION
  Report Type: 
  Country: None (occurrence: None)
  Receive Date: 20040819
  Receipt Date: 20040812
  Transmission Date: 20050211
  Serious: Yes (Hospitalization)
  Sender: FDA-Public Use
  Company Number: 233968K04USA

PATIENT
  Age: 51 Year
  Sex: Female

DRUGS (3)
  1. REBIF [Suspect]
     Indication: MULTIPLE SCLEROSIS
     Dosage: 44 MCG, 3 IN 1 WEEKS
     Dates: start: 20040301
  2. EFFEXOR [Concomitant]
  3. TOPAMAX [Concomitant]

REACTIONS (6)
  - ANGINA PECTORIS [None]
  - BLOOD PRESSURE DECREASED [None]
  - BONE PAIN [None]
  - CARDIAC FIBRILLATION [None]
  - EAR PAIN [None]
  - PAIN IN JAW [None]
